FAERS Safety Report 23631242 (Version 1)
Quarter: 2024Q1

REPORT INFORMATION
  Report Type: Spontaneous
  Country: US (occurrence: None)
  Receive Date: 20240313
  Receipt Date: 20240313
  Transmission Date: 20240409
  Serious: Yes (Hospitalization)
  Sender: FDA-Public Use
  Company Number: None

PATIENT
  Age: 12 Year
  Sex: Male

DRUGS (2)
  1. EVEROLIMUS [Suspect]
     Active Substance: EVEROLIMUS
     Indication: Tuberous sclerosis complex
     Dosage: FREQUENCY : DAILY;?
     Route: 048
     Dates: start: 202111
  2. EPIDIOLEX ORAL SOLN [Concomitant]

REACTIONS (3)
  - Seizure [None]
  - Drug level increased [None]
  - Therapy change [None]

NARRATIVE: CASE EVENT DATE: 20240304
